FAERS Safety Report 13714320 (Version 1)
Quarter: 2017Q3

REPORT INFORMATION
  Report Type: Report from Study
  Country: US (occurrence: US)
  Receive Date: 20170704
  Receipt Date: 20170704
  Transmission Date: 20171127
  Serious: Yes (Hospitalization, Other)
  Sender: FDA-Public Use
  Company Number: US-BIOGEN-2011BI005980

PATIENT
  Age: 28 Year
  Sex: Female

DRUGS (2)
  1. AVONEX [Suspect]
     Active Substance: INTERFERON BETA-1A
     Route: 030
     Dates: start: 20111224
  2. AVONEX [Suspect]
     Active Substance: INTERFERON BETA-1A
     Indication: MULTIPLE SCLEROSIS
     Route: 030
     Dates: start: 20100814, end: 20110122

REACTIONS (3)
  - Preterm premature rupture of membranes [Unknown]
  - Maternal exposure during pregnancy [Recovered/Resolved]
  - Cervical incompetence [Recovered/Resolved]

NARRATIVE: CASE EVENT DATE: 201103
